FAERS Safety Report 21446620 (Version 2)
Quarter: 2022Q4

REPORT INFORMATION
  Report Type: Spontaneous
  Country: ID (occurrence: None)
  Receive Date: 20221012
  Receipt Date: 20221125
  Transmission Date: 20230113
  Serious: Yes (Other)
  Sender: FDA-Public Use
  Company Number: 2022A342222

PATIENT
  Age: 50 Year
  Sex: Female
  Weight: 62 kg

DRUGS (7)
  1. IMFINZI [Suspect]
     Active Substance: DURVALUMAB
     Dosage: EVERY TWO WEEKS
     Route: 065
     Dates: start: 20220401
  2. IMFINZI [Suspect]
     Active Substance: DURVALUMAB
     Dosage: RESUMED
     Route: 065
  3. AMLODIPINE [Concomitant]
     Active Substance: AMLODIPINE BESYLATE
  4. FOLIC ACID [Concomitant]
     Active Substance: FOLIC ACID
  5. NEUROBION [Concomitant]
     Active Substance: CYANOCOBALAMIN\PYRIDOXINE\THIAMINE
  6. ACETYLCYSTEINE [Concomitant]
     Active Substance: ACETYLCYSTEINE
  7. MOXIFLOXACIN [Concomitant]
     Active Substance: MOXIFLOXACIN

REACTIONS (7)
  - Nodule [Unknown]
  - Pneumonitis [Unknown]
  - Hyperventilation [Recovered/Resolved]
  - Fatigue [Recovered/Resolved]
  - Oxygen saturation abnormal [Recovered/Resolved]
  - Cough [Recovered/Resolved]
  - Dyspnoea [Recovered/Resolved]
